FAERS Safety Report 4310251-2 (Version None)
Quarter: 2004Q1

REPORT INFORMATION
  Report Type: 
  Country: None (occurrence: None)
  Receive Date: 20040301
  Receipt Date: 20040301
  Transmission Date: 20041129
  Serious: Yes (Life-Threatening, Hospitalization)
  Sender: FDA-Public Use
  Company Number: None

PATIENT
  Age: 66 Year
  Sex: Female
  Weight: 89.8122 kg

DRUGS (1)
  1. BEXTRA [Suspect]
     Indication: BACK PAIN
     Dosage: 20 MG PO ORAL
     Route: 048
     Dates: start: 20040213, end: 20040220

REACTIONS (6)
  - DYSPHAGIA [None]
  - DYSPNOEA [None]
  - RASH [None]
  - STEVENS-JOHNSON SYNDROME [None]
  - SWOLLEN TONGUE [None]
  - THROAT TIGHTNESS [None]
